FAERS Safety Report 14073429 (Version 1)
Quarter: 2017Q4

REPORT INFORMATION
  Report Type: Spontaneous
  Country: US (occurrence: US)
  Receive Date: 20171010
  Receipt Date: 20171010
  Transmission Date: 20180321
  Serious: No
  Sender: FDA-Public Use
  Company Number: US-JNJFOC-20170814026

PATIENT
  Age: 59 Year
  Sex: Female

DRUGS (5)
  1. TYLENOL [Suspect]
     Active Substance: ACETAMINOPHEN
     Route: 065
  2. TYLENOL [Suspect]
     Active Substance: ACETAMINOPHEN
     Indication: PRODUCT USED FOR UNKNOWN INDICATION
     Route: 065
  3. CLINDAMYCIN PHOSPHATE. [Concomitant]
     Active Substance: CLINDAMYCIN PHOSPHATE
     Indication: BACTERIAL VULVOVAGINITIS
     Dosage: AT BEDTIME FOR 7 DAYS
     Route: 067
     Dates: start: 20170804
  4. FLUCONAZOLE. [Suspect]
     Active Substance: FLUCONAZOLE
     Indication: BACTERIAL VULVOVAGINITIS
     Dosage: ONE DOSE ON DAY 1, ANOTHER DOSE 3 DAYS LATER, THEN 1 TABLET PER WEEK IN 4 WEEKS
     Route: 048
  5. TIROSINT [Concomitant]
     Active Substance: LEVOTHYROXINE SODIUM
     Indication: HYPOTHYROIDISM
     Route: 065
     Dates: start: 2013

REACTIONS (2)
  - Rash [Unknown]
  - Product use in unapproved indication [Not Recovered/Not Resolved]
